FAERS Safety Report 11789753 (Version 3)
Quarter: 2019Q1

REPORT INFORMATION
  Report Type: Spontaneous
  Country: IT (occurrence: IT)
  Receive Date: 20151201
  Receipt Date: 20190129
  Transmission Date: 20190417
  Serious: Yes (Life-Threatening, Hospitalization, Other)
  Sender: FDA-Public Use
  Company Number: IT-MYLANLABS-2015M1041110

PATIENT
  Age: 70 Year
  Sex: Female

DRUGS (41)
  1. OLANZAPINE. [Suspect]
     Active Substance: OLANZAPINE
     Dosage: 2.5 MILLIGRAM
     Dates: start: 2015, end: 2015
  2. RIVOTRIL [Suspect]
     Active Substance: CLONAZEPAM
     Dosage: 10 GTT, UNK
     Dates: start: 2015, end: 2015
  3. RIVOTRIL [Suspect]
     Active Substance: CLONAZEPAM
     Dosage: 10 GTT DROPS
     Dates: start: 2015
  4. ATORVASTATIN [Suspect]
     Active Substance: ATORVASTATIN
     Dosage: 40 MG, PM (40 MG, ONCE DAILY (QD))
     Route: 048
  5. BRILIQUE [Suspect]
     Active Substance: TICAGRELOR
     Indication: PRODUCT USED FOR UNKNOWN INDICATION
     Dosage: 90 MG, BID
     Route: 048
     Dates: start: 2015
  6. TRITTICO [Suspect]
     Active Substance: TRAZODONE HYDROCHLORIDE
     Dosage: 13 GTT, QD (13 GTT, DAILY HS )
     Dates: start: 201501, end: 201507
  7. LEVOTHYROXINE. [Suspect]
     Active Substance: LEVOTHYROXINE
     Indication: PRODUCT USED FOR UNKNOWN INDICATION
     Dosage: UNK
  8. TIROSINT [Concomitant]
     Active Substance: LEVOTHYROXINE SODIUM
     Indication: HYPOTHYROIDISM
     Dosage: 25 MG, UNK
     Dates: start: 2015
  9. OLANZAPINE. [Suspect]
     Active Substance: OLANZAPINE
     Indication: PRODUCT USED FOR UNKNOWN INDICATION
     Dosage: 2.5 MG, HS (2.5 MG, ONCE DAILY (QD) HS)
     Dates: start: 201501, end: 201503
  10. OLANZAPINE. [Suspect]
     Active Substance: OLANZAPINE
     Dosage: 5 MILLIGRAM, QD
  11. CARDIOASPIRIN [Suspect]
     Active Substance: ASPIRIN
     Indication: PRODUCT USED FOR UNKNOWN INDICATION
     Dosage: UNK UNK, QD
     Dates: start: 2015
  12. CARDIOASPIRIN [Suspect]
     Active Substance: ASPIRIN
     Dosage: UNK, QD
  13. PANTOPRAZOLE [Suspect]
     Active Substance: PANTOPRAZOLE
     Dosage: 20 MG, AM (20 MG, ONCE DAILY (QD))
     Route: 048
  14. LORAZEPAM. [Suspect]
     Active Substance: LORAZEPAM
     Dosage: DAILY DOSE 68 GTT
  15. BRILIQUE [Suspect]
     Active Substance: TICAGRELOR
     Dosage: 90 MG, BID
     Route: 048
  16. QUETIAPINE. [Suspect]
     Active Substance: QUETIAPINE
     Indication: PRODUCT USED FOR UNKNOWN INDICATION
     Dosage: 25 MG, HS
     Dates: start: 2015
  17. LOPRESOR                           /00376902/ [Suspect]
     Active Substance: METOPROLOL TARTRATE
     Indication: PRODUCT USED FOR UNKNOWN INDICATION
     Dosage: 25 MG, AM
     Route: 048
     Dates: start: 2015
  18. LOPRESOR                           /00376902/ [Suspect]
     Active Substance: METOPROLOL TARTRATE
     Dosage: 25 MG, AM (25 MG, DAILY)
     Route: 048
  19. TRITTICO [Suspect]
     Active Substance: TRAZODONE HYDROCHLORIDE
     Indication: PRODUCT USED FOR UNKNOWN INDICATION
     Dosage: 13 GTT, QD
     Dates: start: 201501, end: 2015
  20. TRITTICO [Suspect]
     Active Substance: TRAZODONE HYDROCHLORIDE
     Dosage: 15 GTT, QD, 60 MG/ML, 15 GTT, AT NIGHT
     Dates: start: 2015, end: 2015
  21. TRITTICO [Suspect]
     Active Substance: TRAZODONE HYDROCHLORIDE
     Dosage: 10 GTT, UNK
     Dates: start: 2015
  22. RIVOTRIL [Suspect]
     Active Substance: CLONAZEPAM
     Dosage: 1.8 MG, 28 GTT, AT NIGHT
  23. RIVOTRIL [Suspect]
     Active Substance: CLONAZEPAM
     Dosage: 18 GTT, QD
     Dates: end: 2015
  24. QUETIAPINE. [Suspect]
     Active Substance: QUETIAPINE
     Dosage: 25 MG, QD (25 MG, ONCE DAILY (QD), AT NIGHT)
     Route: 048
  25. LORAZEPAM. [Suspect]
     Active Substance: LORAZEPAM
     Dosage: 20 GTT, HS (1 MG, 20 DROPS AT NIGHT )
     Dates: start: 2015, end: 2015
  26. LORAZEPAM. [Suspect]
     Active Substance: LORAZEPAM
     Dosage: 20 GTT
  27. TRITTICO [Suspect]
     Active Substance: TRAZODONE HYDROCHLORIDE
     Dosage: 10 GTT, UNK
  28. TRITTICO [Suspect]
     Active Substance: TRAZODONE HYDROCHLORIDE
     Dosage: 60 MILLIGRAM PER MILLILITRE (60 MG/ML, 15 DROPS, AT NIGHT)
  29. RIVOTRIL [Suspect]
     Active Substance: CLONAZEPAM
     Indication: PRODUCT USED FOR UNKNOWN INDICATION
     Dosage: 18 GTT, PM
     Dates: start: 2015, end: 2015
  30. RIVOTRIL [Suspect]
     Active Substance: CLONAZEPAM
     Dosage: 15 GTT DROPS, QD
     Dates: start: 2015, end: 2015
  31. LORAZEPAM. [Suspect]
     Active Substance: LORAZEPAM
     Dosage: 0.9 MG 18 DROPS
     Dates: start: 2015, end: 2015
  32. LORAZEPAM. [Suspect]
     Active Substance: LORAZEPAM
     Dosage: 0.75 MILLIGRAM (0.75 MG 15 DROPS)
     Dates: start: 2015, end: 2015
  33. RIVOTRIL [Suspect]
     Active Substance: CLONAZEPAM
     Dosage: 1.80 MILLIGRAM, UNK (1.80 MG 18 DROPS)
     Dates: start: 2015, end: 2015
  34. PANTOPRAZOLE [Suspect]
     Active Substance: PANTOPRAZOLE
     Indication: PRODUCT USED FOR UNKNOWN INDICATION
     Dosage: 20 MG, AM
     Dates: start: 2015
  35. ATORVASTATIN [Suspect]
     Active Substance: ATORVASTATIN
     Indication: PRODUCT USED FOR UNKNOWN INDICATION
     Dosage: 40 MG, PM
     Dates: start: 2015
  36. LORAZEPAM. [Suspect]
     Active Substance: LORAZEPAM
     Indication: PRODUCT USED FOR UNKNOWN INDICATION
     Dosage: 15 GTT, BID
     Dates: start: 2015
  37. LORAZEPAM. [Suspect]
     Active Substance: LORAZEPAM
     Dosage: 18 GTT, UNK
     Dates: start: 2015
  38. LORAZEPAM. [Suspect]
     Active Substance: LORAZEPAM
     Dosage: 68 DOSAGE FORM, UNK
  39. OLANZAPINE. [Suspect]
     Active Substance: OLANZAPINE
     Dosage: 5 MG, QD (AT NIGHT)
     Dates: start: 201503, end: 2015
  40. TRIAZOLAM. [Suspect]
     Active Substance: TRIAZOLAM
     Indication: PRODUCT USED FOR UNKNOWN INDICATION
     Dosage: 0.25 MILLIGRAM, QD, 0.25 MG, HS
  41. TRIAZOLAM. [Concomitant]
     Active Substance: TRIAZOLAM
     Indication: PRODUCT USED FOR UNKNOWN INDICATION
     Dosage: 20 GTT, HS
     Dates: start: 2015

REACTIONS (12)
  - Epistaxis [Unknown]
  - Myocardial ischaemia [Unknown]
  - Electrocardiogram T wave inversion [Unknown]
  - Dyspnoea [Unknown]
  - Malaise [Unknown]
  - Hypothyroidism [Unknown]
  - Discomfort [Unknown]
  - Weight increased [Unknown]
  - Suicide attempt [Unknown]
  - Feeling cold [Unknown]
  - Electrocardiogram QT prolonged [Unknown]
  - Fatigue [Unknown]

NARRATIVE: CASE EVENT DATE: 201507
